FAERS Safety Report 11281280 (Version 4)
Quarter: 2015Q4

REPORT INFORMATION
  Report Type: Report from Study
  Country: AT (occurrence: AT)
  Receive Date: 20150717
  Receipt Date: 20151124
  Transmission Date: 20160304
  Serious: Yes (Hospitalization, Other)
  Sender: FDA-Public Use
  Company Number: AT-INCYTE CORPORATION-2013IN002349

PATIENT
  Age: 72 Year
  Sex: Female
  Weight: 53 kg

DRUGS (73)
  1. JAKAFI [Suspect]
     Active Substance: RUXOLITINIB
     Indication: MYELOFIBROSIS
     Dosage: 15 MG, QD
     Route: 048
     Dates: start: 20111102
  2. JAKAFI [Suspect]
     Active Substance: RUXOLITINIB
     Dosage: 5 MG, 2 DF, BID
     Route: 048
  3. OTRIVIN [Concomitant]
     Active Substance: XYLOMETAZOLINE
  4. DIABETEX [Concomitant]
     Dosage: 850 MG, QD
  5. DIABETEX [Concomitant]
     Dosage: 850 MG, QD
  6. UROSIN [Concomitant]
     Active Substance: ALLOPURINOL
     Dosage: 0.5 DF, ON EVEN DAY
     Route: 065
  7. CLYSMOL [Concomitant]
     Indication: CONSTIPATION
     Dosage: 1 DF, BID
  8. CLYSMOL [Concomitant]
     Dosage: 1 DF, BID
  9. ALLOPURINOL. [Concomitant]
     Active Substance: ALLOPURINOL
     Dosage: 300 MG, ON EVEN DAYS
     Route: 065
  10. ALLOPURINOL. [Concomitant]
     Active Substance: ALLOPURINOL
     Dosage: 300 MG, ON EVEN DAYS
     Route: 065
  11. ALLOPURINOL. [Concomitant]
     Active Substance: ALLOPURINOL
     Dosage: 300 MG, ON EVEN DAYS
     Route: 065
  12. ALLOPURINOL. [Concomitant]
     Active Substance: ALLOPURINOL
     Dosage: 0.5 DF, QD
     Route: 065
  13. XEFO [Concomitant]
     Active Substance: LORNOXICAM
     Indication: PRODUCT USED FOR UNKNOWN INDICATION
     Dosage: 8 UNK, UNK
     Route: 065
  14. TRITTICO [Concomitant]
     Active Substance: TRAZODONE HYDROCHLORIDE
     Indication: PRODUCT USED FOR UNKNOWN INDICATION
     Dosage: 0.33 UNK, UNK
     Route: 065
  15. METFORMIN [Concomitant]
     Active Substance: METFORMIN HYDROCHLORIDE
     Indication: PRODUCT USED FOR UNKNOWN INDICATION
     Dosage: 850 MG, QD (0-0-1)
     Route: 065
  16. JAKAFI [Suspect]
     Active Substance: RUXOLITINIB
     Dosage: 5 MG, BID, 2-0-1
     Route: 048
     Dates: start: 20140717
  17. XARELTO [Concomitant]
     Active Substance: RIVAROXABAN
     Indication: COAGULOPATHY
  18. OTRIVIN [Concomitant]
     Active Substance: XYLOMETAZOLINE
  19. NEURONTIN [Concomitant]
     Active Substance: GABAPENTIN
     Indication: CHEST PAIN
     Dosage: UNK
     Route: 065
  20. AUGMENTIN [Concomitant]
     Active Substance: AMOXICILLIN\CLAVULANATE POTASSIUM
     Dosage: 1 G, QD (3X1)
  21. CLYSMOL [Concomitant]
     Dosage: 1 DF, BID
  22. ALLOPURINOL. [Concomitant]
     Active Substance: ALLOPURINOL
     Dosage: 300 MG, ON EVEN DAYS
     Route: 065
  23. PANTOLOC//PANTOPRAZOLE SODIUM SESQUIHYDRATE [Concomitant]
     Active Substance: PANTOPRAZOLE SODIUM
     Indication: PRODUCT USED FOR UNKNOWN INDICATION
     Dosage: 40 MG, QD
     Route: 065
     Dates: start: 20130813
  24. NEXIUM [Concomitant]
     Active Substance: ESOMEPRAZOLE MAGNESIUM
     Dosage: 40 MG, QD (1-0-0)
     Route: 065
  25. UROSIN [Concomitant]
     Active Substance: ALLOPURINOL
     Dosage: 0.5 DF, MON, WED, FRI
  26. UROSIN [Concomitant]
     Active Substance: ALLOPURINOL
     Dosage: 300 MG, QD
  27. UROSIN [Concomitant]
     Active Substance: ALLOPURINOL
     Dosage: 0.5 DF, ON EVEN DAY
     Route: 065
  28. NEURONTIN [Concomitant]
     Active Substance: GABAPENTIN
     Dosage: 300 MG, QD
  29. CLYSMOL [Concomitant]
     Route: 065
  30. XANOR [Concomitant]
     Active Substance: ALPRAZOLAM
     Indication: PRODUCT USED FOR UNKNOWN INDICATION
     Dosage: 0.5 MG, QD
     Route: 065
  31. CALCIUM GLYCEROPHOSPHATE\CELLULOSE\POLYETHYLENE GLYCOL\SACCHARIN SODIUM\SODIUM HYDROXIDE\SODIUM LAURYL SULFATE\SODIUM MAGNESIUM SILICATE\SODIUM MONOFLUOROPHOSPHATE\SORBITOL\WATER [Concomitant]
     Active Substance: CALCIUM GLYCEROPHOSPHATE\POLYETHYLENE GLYCOLS\POWDERED CELLULOSE\SACCHARIN SODIUM DIHYDRATE\SODIUM HYDROXIDE\SODIUM LAURYL SULFATE\SODIUM MAGNESIUM SILICATE\SODIUM MONOFLUOROPHOSPHATE\SORBITOL\WATER
     Indication: PRODUCT USED FOR UNKNOWN INDICATION
     Dosage: 1 PER DAY
     Route: 065
  32. DIOVAN [Concomitant]
     Active Substance: VALSARTAN
     Indication: HYPERTENSION
     Dosage: 160 MG, QD (1-0-0)
     Route: 065
     Dates: start: 20111116
  33. AMLODIPINE [Concomitant]
     Active Substance: AMLODIPINE BESYLATE
     Indication: HYPERTENSION
     Dosage: 5 MG, QD (1-0-0)
     Route: 065
     Dates: start: 20130805
  34. BISOCOR [Concomitant]
     Active Substance: BISOPROLOL FUMARATE
     Indication: PRODUCT USED FOR UNKNOWN INDICATION
     Dosage: 5 MG, QD
     Route: 065
     Dates: start: 20141117
  35. BISOCOR [Concomitant]
     Active Substance: BISOPROLOL FUMARATE
     Dosage: 0.5 MG, QD
     Route: 065
  36. DIABETEX [Concomitant]
     Indication: PRODUCT USED FOR UNKNOWN INDICATION
     Dosage: 850 UNK, UNK
     Route: 065
  37. DIABETEX [Concomitant]
     Dosage: 850 MG, QD
  38. DIABETEX [Concomitant]
     Dosage: 850 MG, QD
  39. UROSIN [Concomitant]
     Active Substance: ALLOPURINOL
     Dosage: 0.5 DF, MON, WED, FRI
  40. CLYSMOL [Concomitant]
     Route: 065
  41. CLYSMOL [Concomitant]
     Dosage: 1 DF, BID
  42. ALLOPURINOL. [Concomitant]
     Active Substance: ALLOPURINOL
     Dosage: 300 MG, ON EVEN DAYS
     Route: 065
  43. JAKAFI [Suspect]
     Active Substance: RUXOLITINIB
     Dosage: UNK
     Route: 048
     Dates: start: 20111202
  44. XARELTO [Concomitant]
     Active Substance: RIVAROXABAN
     Indication: THROMBOSIS PROPHYLAXIS
     Dosage: 15 MG, QD (1-0-0)
     Route: 065
     Dates: start: 20130805
  45. OTRIVIN [Concomitant]
     Active Substance: XYLOMETAZOLINE
  46. OTRIVIN [Concomitant]
     Active Substance: XYLOMETAZOLINE
  47. UROSIN [Concomitant]
     Active Substance: ALLOPURINOL
     Indication: HYPERURICAEMIA
     Dosage: UNK
     Route: 065
  48. UROSIN [Concomitant]
     Active Substance: ALLOPURINOL
     Dosage: 300 MG, QD
  49. UROSIN [Concomitant]
     Active Substance: ALLOPURINOL
     Dosage: 0.5 DF, MON, WED, FRI
  50. NEURONTIN [Concomitant]
     Active Substance: GABAPENTIN
     Dosage: 300 MG, QD
  51. KEFLEX//CEFALEXIN [Concomitant]
     Indication: PRODUCT USED FOR UNKNOWN INDICATION
     Dosage: 1 DF, TID
     Route: 065
  52. ALLOPURINOL. [Concomitant]
     Active Substance: ALLOPURINOL
     Indication: PRODUCT USED FOR UNKNOWN INDICATION
     Dosage: 300 MG, ON EVEN DAYS
     Route: 065
  53. CALCIUM GLYCEROPHOSPHATE\CELLULOSE\POLYETHYLENE GLYCOL\SACCHARIN SODIUM\SODIUM HYDROXIDE\SODIUM LAURYL SULFATE\SODIUM MAGNESIUM SILICATE\SODIUM MONOFLUOROPHOSPHATE\SORBITOL\WATER [Concomitant]
     Active Substance: CALCIUM GLYCEROPHOSPHATE\POLYETHYLENE GLYCOLS\POWDERED CELLULOSE\SACCHARIN SODIUM DIHYDRATE\SODIUM HYDROXIDE\SODIUM LAURYL SULFATE\SODIUM MAGNESIUM SILICATE\SODIUM MONOFLUOROPHOSPHATE\SORBITOL\WATER
     Dosage: 1 DF, QD
  54. NEXIUM [Concomitant]
     Active Substance: ESOMEPRAZOLE MAGNESIUM
     Indication: PRODUCT USED FOR UNKNOWN INDICATION
     Route: 065
  55. AUGMENTIN [Concomitant]
     Active Substance: AMOXICILLIN\CLAVULANATE POTASSIUM
     Indication: PRODUCT USED FOR UNKNOWN INDICATION
     Dosage: 1 G (3X1)
     Route: 065
  56. ALLOPURINOL. [Concomitant]
     Active Substance: ALLOPURINOL
     Dosage: 0.5 DF, QD
     Route: 065
  57. XEFO [Concomitant]
     Active Substance: LORNOXICAM
     Indication: PAIN
     Dosage: 8 MG, IN CASE OF PAIN
     Route: 065
  58. JAKAFI [Suspect]
     Active Substance: RUXOLITINIB
     Dosage: 15 MG, QD
     Route: 048
     Dates: start: 20130507, end: 20140716
  59. EUTHYROX [Concomitant]
     Active Substance: LEVOTHYROXINE SODIUM
     Dosage: 25 UG, UNK
     Route: 065
  60. OTRIVIN [Concomitant]
     Active Substance: XYLOMETAZOLINE
     Indication: RHINORRHOEA
     Dosage: 1 DF, TID
     Route: 065
  61. UROSIN [Concomitant]
     Active Substance: ALLOPURINOL
     Dosage: 0.5 DF, ON EVEN DAY
     Route: 065
  62. CLYSMOL [Concomitant]
     Indication: ABDOMINAL PAIN
     Dosage: UNK
     Route: 065
  63. CLYSMOL [Concomitant]
     Dosage: 1 DF, BID
  64. ALLOPURINOL. [Concomitant]
     Active Substance: ALLOPURINOL
     Dosage: 300 MG, ON EVEN DAYS
     Route: 065
  65. EUTHYROX [Concomitant]
     Active Substance: LEVOTHYROXINE SODIUM
     Indication: PRODUCT USED FOR UNKNOWN INDICATION
     Dosage: 37.5 NG, QD
     Route: 065
     Dates: start: 20140306
  66. ZOLDEM [Concomitant]
     Active Substance: ZOLPIDEM TARTRATE
     Indication: PRODUCT USED FOR UNKNOWN INDICATION
     Dosage: 10 MG, QD
     Route: 065
     Dates: start: 20150118
  67. UROSIN [Concomitant]
     Active Substance: ALLOPURINOL
     Dosage: 300 MG, QD
  68. NEURONTIN [Concomitant]
     Active Substance: GABAPENTIN
     Dosage: 300 MG, QD
  69. CLYSMOL [Concomitant]
     Route: 065
  70. CLYSMOL [Concomitant]
     Dosage: 1 DF, BID
  71. ALLOPURINOL. [Concomitant]
     Active Substance: ALLOPURINOL
     Dosage: 300 MG, ON EVEN DAYS
     Route: 065
  72. ALLOPURINOL. [Concomitant]
     Active Substance: ALLOPURINOL
     Dosage: 300 MG, ON EVEN DAYS
     Route: 065
  73. ALLOPURINOL. [Concomitant]
     Active Substance: ALLOPURINOL
     Dosage: 0.5 DF, QD
     Route: 065

REACTIONS (48)
  - Thrombocytopenia [Recovered/Resolved]
  - Mitral valve incompetence [Recovering/Resolving]
  - Aortic arteriosclerosis [Unknown]
  - Haematoma [Unknown]
  - Hyperventilation [Recovered/Resolved]
  - Post procedural haemorrhage [Recovered/Resolved]
  - Dyspnoea [Recovered/Resolved]
  - Spinal osteoarthritis [Unknown]
  - Thrombocytopenia [Unknown]
  - Splenomegaly [Unknown]
  - Pacemaker generated arrhythmia [Recovered/Resolved]
  - Spinal pain [Unknown]
  - Condition aggravated [Recovered/Resolved with Sequelae]
  - Klebsiella infection [Unknown]
  - Blood pressure increased [Unknown]
  - Aneurysm [Recovered/Resolved]
  - Aneurysm [Unknown]
  - Emphysema [Unknown]
  - Spinal pain [Recovered/Resolved]
  - Nausea [Unknown]
  - Aortic stenosis [Unknown]
  - Hiatus hernia [Unknown]
  - Neuropathy peripheral [Unknown]
  - Blood glucose increased [Unknown]
  - Arteriosclerosis [Unknown]
  - Anaemia [Recovering/Resolving]
  - Sinus node dysfunction [Recovering/Resolving]
  - Nausea [Recovered/Resolved]
  - Blood lactate dehydrogenase increased [Unknown]
  - Platelet count decreased [Unknown]
  - Hypothyroidism [Unknown]
  - Atrial fibrillation [Recovering/Resolving]
  - Pacemaker generated arrhythmia [Recovered/Resolved]
  - Palpitations [Recovered/Resolved]
  - Dyspnoea [Recovered/Resolved]
  - Groin pain [Recovered/Resolved]
  - Urinary tract infection [Unknown]
  - Vertebral foraminal stenosis [Unknown]
  - Pleural effusion [Recovered/Resolved]
  - Oedema peripheral [Recovering/Resolving]
  - Osteoarthritis [Unknown]
  - Escherichia urinary tract infection [Recovering/Resolving]
  - Pneumonia [Recovered/Resolved]
  - Infected dermal cyst [Recovering/Resolving]
  - Spinal pain [Recovered/Resolved]
  - Abdominal pain [Recovered/Resolved]
  - Pneumonia [Recovering/Resolving]
  - Spinal pain [Unknown]

NARRATIVE: CASE EVENT DATE: 20111128
